FAERS Safety Report 5087127-9 (Version None)
Quarter: 2006Q3

REPORT INFORMATION
  Report Type: 
  Country: None (occurrence: None)
  Receive Date: 20060821
  Receipt Date: 20060814
  Transmission Date: 20061208
  Serious: Yes (Death)
  Sender: FDA-Public Use
  Company Number: 2005147622

PATIENT
  Sex: 0

DRUGS (1)
  1. NIFEDIPINE [Suspect]
     Indication: TOCOLYSIS
     Dosage: 20 MG ORAL
     Route: 048

REACTIONS (2)
  - DRUG EXPOSURE DURING PREGNANCY [None]
  - INTRA-UTERINE DEATH [None]
